FAERS Safety Report 9363659 (Version 1)
Quarter: 2013Q1

REPORT INFORMATION
  Report Type: Spontaneous
  Country: US (occurrence: None)
  Receive Date: 20130305
  Receipt Date: 20130305
  Transmission Date: 20140127
  Serious: Yes (Death, Other)
  Sender: FDA-Public Use
  Company Number: TPA2012A06789

PATIENT
  Age: 66 Year
  Sex: Male

DRUGS (6)
  1. ACTOS (PIOGLITAZONE HYDROCHLORIDE) [Suspect]
     Indication: TYPE 2 DIABETES MELLITUS
     Dates: start: 1999, end: 2009
  2. METFORMIN (METFORMIN) [Concomitant]
  3. LISPRO (INSULIN LISPRO) [Concomitant]
  4. GLARGINE/LANTUS (INSULIN GLARGINE) [Concomitant]
  5. JANUVIA (SITAGLIPTIN PHOSPHATE) [Concomitant]
  6. BYETTA (EXENATIDE) [Concomitant]

REACTIONS (1)
  - Bladder cancer [None]
